FAERS Safety Report 5259342-2 (Version None)
Quarter: 2007Q1

REPORT INFORMATION
  Report Type: 
  Country: None (occurrence: None)
  Receive Date: 20070305
  Receipt Date: 20070219
  Transmission Date: 20070707
  Serious: Yes (Disabling)
  Sender: FDA-Public Use
  Company Number: 02100-JPN-07-0076

PATIENT
  Age: 90 Year
  Sex: Male

DRUGS (3)
  1. CILOSTAZOL [Suspect]
     Indication: ARTERIAL OCCLUSIVE DISEASE
     Dosage: 200 MG ORAL
     Route: 048
     Dates: start: 20060930, end: 20061003
  2. FAMOTIDINE [Concomitant]
  3. MAGNESIUM OXIDE [Concomitant]

REACTIONS (2)
  - EXTRADURAL HAEMATOMA [None]
  - POST PROCEDURAL COMPLICATION [None]
